FAERS Safety Report 7777255-9 (Version None)
Quarter: 2011Q3

REPORT INFORMATION
  Report Type: 
  Country: None (occurrence: None)
  Receive Date: 20110926
  Receipt Date: 20110913
  Transmission Date: 20111222
  Serious: Yes (Hospitalization)
  Sender: FDA-Public Use
  Company Number: PHHO2011DE10545

PATIENT
  Sex: Female
  Weight: 70.6 kg

DRUGS (12)
  1. MICAFUNGIN [Concomitant]
     Dosage: 50 MG, QD
     Route: 048
  2. PANTOPRAZOLE [Concomitant]
     Dosage: 40 MG, QD
     Route: 048
  3. LEVOFLOXACIN [Concomitant]
     Indication: PROPHYLAXIS
     Dosage: 500 MG, UNK
     Route: 048
     Dates: start: 20110907, end: 20110912
  4. ANIDULAFUNGIN [Concomitant]
     Indication: PROPHYLAXIS
     Dosage: 100 MG, UNK
     Route: 042
     Dates: start: 20110902, end: 20110912
  5. CYTARABINE [Suspect]
     Indication: ACUTE MYELOID LEUKAEMIA
     Dosage: 500 MG/M2, BID
     Route: 042
     Dates: start: 20110612
  6. NEUPOGEN [Concomitant]
     Indication: GRANULOCYTES ABNORMAL
     Dosage: 48 IE
     Dates: start: 20110911, end: 20110912
  7. DEXAMETHASONE [Concomitant]
     Indication: PROPHYLAXIS
     Dosage: 8 MG, BID
     Route: 042
     Dates: start: 20110902, end: 20110912
  8. LBH589 [Suspect]
     Indication: ACUTE MYELOID LEUKAEMIA
     Dosage: 50 MG, BID
     Route: 048
     Dates: start: 20110612, end: 20110911
  9. MITOXANTRONE [Suspect]
     Indication: ACUTE MYELOID LEUKAEMIA
     Dosage: 5 MG/M2, QD
     Route: 042
     Dates: start: 20110612
  10. FUROSEMIDE [Concomitant]
     Dosage: 40 MG, BID
     Route: 048
  11. ALLOPURINOL [Concomitant]
     Dosage: 300 MG, QD
  12. RAMIPRIL [Concomitant]
     Dosage: 2.5 MG, QD
     Route: 048

REACTIONS (2)
  - FEBRILE NEUTROPENIA [None]
  - SEPSIS [None]
